FAERS Safety Report 23389383 (Version 7)
Quarter: 2024Q1

REPORT INFORMATION
  Report Type: Report from Study
  Country: ES (occurrence: ES)
  Receive Date: 20240110
  Receipt Date: 20240227
  Transmission Date: 20240410
  Serious: Yes (Death, Hospitalization)
  Sender: FDA-Public Use
  Company Number: ES-ABBVIE-5579472

PATIENT
  Sex: Male

DRUGS (3)
  1. CARBIDOPA\LEVODOPA [Suspect]
     Active Substance: CARBIDOPA\LEVODOPA
     Indication: Parkinson^s disease
     Route: 050
     Dates: start: 20231213, end: 202401
  2. CARBIDOPA\LEVODOPA [Suspect]
     Active Substance: CARBIDOPA\LEVODOPA
     Dosage: INCREASE CONTINUOUS DOSE TO 3.5ML AND EXTRA DOSE TO 3ML
     Route: 050
     Dates: start: 202401
  3. MORPHINE [Concomitant]
     Active Substance: MORPHINE
     Indication: Product used for unknown indication

REACTIONS (8)
  - Death [Fatal]
  - Infection [Unknown]
  - Influenza [Recovering/Resolving]
  - Respiratory disorder [Unknown]
  - Urinary tract infection [Unknown]
  - Pneumonia [Recovering/Resolving]
  - Therapeutic product effect incomplete [Recovering/Resolving]
  - Bacterial test positive [Unknown]

NARRATIVE: CASE EVENT DATE: 20240101
